FAERS Safety Report 7334042-3 (Version None)
Quarter: 2011Q1

REPORT INFORMATION
  Report Type: 
  Country: None (occurrence: None)
  Receive Date: 20110307
  Receipt Date: 20110221
  Transmission Date: 20110831
  Serious: Yes (Life-Threatening, Hospitalization, Other)
  Sender: FDA-Public Use
  Company Number: JP-CELGENEUS-087-21880-10102311

PATIENT
  Age: 53 Year
  Sex: Male

DRUGS (11)
  1. ZOSYN [Concomitant]
     Indication: MULTIPLE MYELOMA
     Dosage: 4.5 GRAM
     Route: 041
     Dates: start: 20101019, end: 20101023
  2. REVLIMID [Suspect]
     Indication: LEUKAEMIA PLASMACYTIC
     Dosage: 5 MILLIGRAM
     Route: 048
     Dates: start: 20101013, end: 20101022
  3. FIRSTCIN [Concomitant]
     Indication: MULTIPLE MYELOMA
     Dosage: 1 GRAM
     Route: 041
     Dates: start: 20101012, end: 20101018
  4. BAKTAR [Concomitant]
     Indication: PROPHYLAXIS
     Dosage: ADEQUATE DOSE
     Route: 048
     Dates: start: 20101016, end: 20101017
  5. ANTIBIOTICS [Concomitant]
     Route: 065
  6. OXYGEN [Concomitant]
     Dosage: 2 LITERS
     Route: 055
  7. ANTIFUNGALS [Concomitant]
     Route: 065
  8. AMBISOME [Concomitant]
     Indication: MULTIPLE MYELOMA
     Dosage: ADEQUATE DOSE
     Route: 041
     Dates: start: 20101013, end: 20101101
  9. LENADEX [Suspect]
     Indication: MULTIPLE MYELOMA
     Dosage: 20 MILLIGRAM
     Route: 048
     Dates: start: 20101012, end: 20101020
  10. DECADRON [Concomitant]
     Indication: LEUKAEMIA PLASMACYTIC
     Route: 048
     Dates: start: 20101013
  11. METHYLPREDNISOLONE [Concomitant]
     Indication: MULTIPLE MYELOMA
     Dosage: 10 MILLIGRAM
     Dates: start: 20101012, end: 20101022

REACTIONS (5)
  - PLATELET COUNT DECREASED [None]
  - BLOOD BILIRUBIN INCREASED [None]
  - WHITE BLOOD CELL COUNT DECREASED [None]
  - HAEMOGLOBIN DECREASED [None]
  - BLOOD ALKALINE PHOSPHATASE INCREASED [None]
